FAERS Safety Report 18175023 (Version 1)
Quarter: 2020Q3

REPORT INFORMATION
  Report Type: Spontaneous
  Country: CA (occurrence: CA)
  Receive Date: 20200820
  Receipt Date: 20200820
  Transmission Date: 20201103
  Serious: Yes (Hospitalization, Other)
  Sender: FDA-Public Use
  Company Number: CA-ACCORD-196011

PATIENT
  Sex: Female

DRUGS (9)
  1. PANTOLOC [Concomitant]
     Active Substance: PANTOPRAZOLE SODIUM
     Dosage: FREQUENCY: 1 EVERY 1 DAYS
  2. METHOTREXATE. [Suspect]
     Active Substance: METHOTREXATE
     Indication: PRODUCT USED FOR UNKNOWN INDICATION
  3. OXYCODONE [Suspect]
     Active Substance: OXYCODONE
     Indication: PRODUCT USED FOR UNKNOWN INDICATION
  4. PREDNISONE. [Concomitant]
     Active Substance: PREDNISONE
     Dosage: FREQUENCY: 1 EVERY 1 DAYS
  5. ROSUVASTATIN. [Concomitant]
     Active Substance: ROSUVASTATIN
  6. ERGOCALCIFEROL. [Concomitant]
     Active Substance: ERGOCALCIFEROL
  7. SULFASALAZINE. [Suspect]
     Active Substance: SULFASALAZINE
     Indication: PRODUCT USED FOR UNKNOWN INDICATION
  8. JANUVIA [Concomitant]
     Active Substance: SITAGLIPTIN PHOSPHATE
  9. SACCHARATED IRON OXIDE [Concomitant]
     Active Substance: IRON SUCROSE

REACTIONS (11)
  - Nausea [Unknown]
  - Pain in extremity [Unknown]
  - Sepsis [Unknown]
  - Iron deficiency [Unknown]
  - Drug ineffective [Unknown]
  - Vomiting [Unknown]
  - Arthralgia [Unknown]
  - Drug hypersensitivity [Unknown]
  - C-reactive protein increased [Unknown]
  - Crohn^s disease [Unknown]
  - Tachycardia [Unknown]
